FAERS Safety Report 5802509-2 (Version None)
Quarter: 2008Q3

REPORT INFORMATION
  Report Type: 
  Country: None (occurrence: None)
  Receive Date: 20080708
  Receipt Date: 20080626
  Transmission Date: 20090109
  Serious: Yes (Hospitalization, Other)
  Sender: FDA-Public Use
  Company Number: US-WYE-H04619708

PATIENT
  Age: 34 Year
  Sex: Female
  Weight: 68.1 kg

DRUGS (7)
  1. ADVIL [Suspect]
     Indication: DYSMENORRHOEA
     Dosage: 2 TABLETS ONE TIME
     Route: 048
     Dates: start: 20080614, end: 20080614
  2. NORVASC [Concomitant]
     Indication: CARDIAC DISORDER
     Route: 048
     Dates: start: 20071217
  3. ACETYLSALICYLIC ACID SRT [Concomitant]
     Indication: CARDIAC DISORDER
     Route: 048
     Dates: start: 20071217
  4. TOPROL-XL [Concomitant]
     Indication: CARDIAC DISORDER
     Route: 048
     Dates: start: 20071217
  5. ZOLOFT [Concomitant]
     Indication: ANXIETY
     Route: 048
     Dates: start: 20080401
  6. SIMVASTATIN [Concomitant]
     Indication: CARDIAC DISORDER
     Route: 048
     Dates: start: 20071217
  7. PLAVIX [Concomitant]
     Indication: CARDIAC DISORDER
     Route: 048
     Dates: start: 20071217

REACTIONS (1)
  - MYOCARDIAL INFARCTION [None]
